FAERS Safety Report 9258660 (Version 6)
Quarter: 2013Q2

REPORT INFORMATION
  Report Type: Spontaneous
  Country: US (occurrence: US)
  Receive Date: 20130426
  Receipt Date: 20130531
  Transmission Date: 20140414
  Serious: Yes (Hospitalization, Disabling, Other)
  Sender: FDA-Public Use
  Company Number: US-009507513-1304USA010904

PATIENT
  Sex: Female
  Weight: 49.89 kg

DRUGS (1)
  1. NUVARING [Suspect]
     Indication: CONTRACEPTION
     Dosage: UNK
     Route: 067
     Dates: start: 200902, end: 200912

REACTIONS (12)
  - Cerebrovascular accident [Recovered/Resolved with Sequelae]
  - Thrombosis [Unknown]
  - Substance use [Unknown]
  - Depression [Not Recovered/Not Resolved]
  - Upper respiratory tract infection [Unknown]
  - Urinary tract infection [Unknown]
  - Unintended pregnancy [Recovered/Resolved]
  - Anxiety [Unknown]
  - Antithrombin III deficiency [Unknown]
  - Vaginal haemorrhage [Unknown]
  - Panic attack [Unknown]
  - Hypertension [Unknown]
